FAERS Safety Report 24073250 (Version 2)
Quarter: 2024Q3

REPORT INFORMATION
  Report Type: Spontaneous
  Country: AT (occurrence: AT)
  Receive Date: 20240710
  Receipt Date: 20240802
  Transmission Date: 20241017
  Serious: Yes (Life-Threatening, Other)
  Sender: ACCORD
  Company Number: None

PATIENT
  Age: 60 Year
  Sex: Male

DRUGS (6)
  1. ETOPOSIDE [Suspect]
     Active Substance: ETOPOSIDE
     Indication: Hodgkin^s disease
     Dates: start: 20230704, end: 20230906
  2. DOXORUBICIN [Suspect]
     Active Substance: DOXORUBICIN
     Indication: Hodgkin^s disease
     Dates: start: 20230704, end: 20230906
  3. BRENTUXIMAB VEDOTIN [Suspect]
     Active Substance: BRENTUXIMAB VEDOTIN
     Indication: Product used for unknown indication
     Dates: start: 20230704, end: 20230906
  4. CYCLOPHOSPHAMIDE [Suspect]
     Active Substance: CYCLOPHOSPHAMIDE
     Indication: Hodgkin^s disease
     Dates: start: 20230704, end: 20230906
  5. DACARBAZINE [Suspect]
     Active Substance: DACARBAZINE
     Indication: Hodgkin^s disease
     Dates: start: 20230704, end: 20230906
  6. DEXAMETHASONE [Suspect]
     Active Substance: DEXAMETHASONE
     Indication: Hodgkin^s disease
     Dates: start: 20230704, end: 20230906

REACTIONS (12)
  - Night sweats [Unknown]
  - Rash [Unknown]
  - Anaemia [Unknown]
  - Reticulocyte count increased [Unknown]
  - Thrombocytopenia [Recovered/Resolved]
  - White blood cell count increased [Unknown]
  - Cytopenia [Unknown]
  - Herpes zoster [Recovered/Resolved]
  - Blood lactate dehydrogenase increased [Unknown]
  - Pelvic pain [Unknown]
  - Neutropenia [Recovered/Resolved]
  - Prohormone brain natriuretic peptide increased [Unknown]

NARRATIVE: CASE EVENT DATE: 20230803
